FAERS Safety Report 5492325-6 (Version None)
Quarter: 2007Q4

REPORT INFORMATION
  Report Type: 
  Country: None (occurrence: None)
  Receive Date: 20071022
  Receipt Date: 20071015
  Transmission Date: 20080405
  Serious: Yes (Death)
  Sender: FDA-Public Use
  Company Number: GB-AVENTIS-200714863EU

PATIENT
  Sex: Male

DRUGS (1)
  1. CLEXANE [Suspect]

REACTIONS (2)
  - HAEMOPTYSIS [None]
  - INCORRECT DOSE ADMINISTERED [None]
